FAERS Safety Report 5634899-8 (Version None)
Quarter: 2008Q1

REPORT INFORMATION
  Report Type: 
  Country: None (occurrence: None)
  Receive Date: 20080222
  Receipt Date: 20080214
  Transmission Date: 20080703
  Serious: Yes (Life-Threatening)
  Sender: FDA-Public Use
  Company Number: JP-BRACCO-000055

PATIENT
  Age: 73 Year
  Sex: Male

DRUGS (11)
  1. IOPAMIRON [Suspect]
     Indication: COMPUTERISED TOMOGRAM
     Route: 042
     Dates: start: 20071226, end: 20071226
  2. IOPAMIRON [Suspect]
     Indication: HEPATITIS C
     Route: 042
     Dates: start: 20071226, end: 20071226
  3. PLATELETS [Concomitant]
     Dosage: PLATELET TRANSFUSION
     Route: 042
     Dates: start: 20071226, end: 20071227
  4. SOLU-MEDROL [Concomitant]
     Route: 065
     Dates: start: 20071226, end: 20071226
  5. SOLU-MEDROL [Concomitant]
     Route: 065
     Dates: start: 20071227, end: 20071227
  6. ANTITHROMBIN III [Concomitant]
     Route: 065
     Dates: start: 20071226, end: 20071228
  7. MYSLEE [Concomitant]
     Route: 048
  8. MUCOSTA [Concomitant]
     Route: 048
  9. MAGMITT [Concomitant]
     Route: 048
  10. LOCOID [Concomitant]
     Route: 061
  11. EVIPROSTAT [Concomitant]
     Route: 048

REACTIONS (1)
  - THROMBOCYTOPENIA [None]
